FAERS Safety Report 7382471-4 (Version None)
Quarter: 2011Q1

REPORT INFORMATION
  Report Type: 
  Country: None (occurrence: None)
  Receive Date: 20110329
  Receipt Date: 20110228
  Transmission Date: 20110831
  Serious: Yes (Hospitalization, Other)
  Sender: FDA-Public Use
  Company Number: US-BAYER-2010-008428

PATIENT
  Sex: Female
  Weight: 77.098 kg

DRUGS (7)
  1. CITALOPRAM HYDROBROMIDE [Concomitant]
     Indication: INSOMNIA
  2. YAZ [Suspect]
     Indication: PREMENSTRUAL SYNDROME
     Dosage: UNK UNK, QD
     Dates: start: 20080601, end: 20081001
  3. YAZ [Suspect]
     Indication: DYSMENORRHOEA
  4. XOPENEX [Concomitant]
     Indication: INSOMNIA
  5. CITALOPRAM HYDROBROMIDE [Concomitant]
     Indication: ANXIETY
  6. XOPENEX [Concomitant]
     Indication: ANXIETY
  7. AMBIEN [Concomitant]
     Indication: SLEEP DISORDER

REACTIONS (7)
  - POST-TRAUMATIC STRESS DISORDER [None]
  - INJURY [None]
  - DEPRESSION [None]
  - PULMONARY EMBOLISM [None]
  - ANXIETY [None]
  - PAIN [None]
  - DEEP VEIN THROMBOSIS [None]
